FAERS Safety Report 4730900-4 (Version None)
Quarter: 2005Q3

REPORT INFORMATION
  Report Type: 
  Country: None (occurrence: None)
  Receive Date: 20050719
  Receipt Date: 20050331
  Transmission Date: 20060218
  Serious: Yes (Life-Threatening)
  Sender: FDA-Public Use
  Company Number: US-2005-004750

PATIENT
  Sex: Female

DRUGS (1)
  1. ULTRAVIST (PHARMACY BULK) [Suspect]
     Indication: COMPUTERISED TOMOGRAM ABDOMEN
     Dosage: 100 MG, 1 DOSE, INTRAVENOUS
     Route: 042
     Dates: start: 20050325, end: 20050325

REACTIONS (1)
  - OROPHARYNGEAL SWELLING [None]
